FAERS Safety Report 4591002-3 (Version None)
Quarter: 2005Q1

REPORT INFORMATION
  Report Type: 
  Country: None (occurrence: None)
  Receive Date: 20050222
  Receipt Date: 20050222
  Transmission Date: 20050727
  Serious: No
  Sender: FDA-Public Use
  Company Number: None

PATIENT
  Age: 15 Year
  Sex: Male
  Weight: 54.4316 kg

DRUGS (1)
  1. MOBIC [Suspect]

REACTIONS (3)
  - DYSGEUSIA [None]
  - FACIAL PALSY [None]
  - HYPOAESTHESIA ORAL [None]
